FAERS Safety Report 13746159 (Version 1)
Quarter: 2017Q3

REPORT INFORMATION
  Report Type: Spontaneous
  Country: US (occurrence: US)
  Receive Date: 20170712
  Receipt Date: 20170712
  Transmission Date: 20171127
  Serious: Yes (Other)
  Sender: FDA-Public Use
  Company Number: US-PFIZER INC-2017299872

PATIENT
  Sex: Female

DRUGS (1)
  1. LYRICA [Suspect]
     Active Substance: PREGABALIN
     Dosage: UNK (FULL DOSE)

REACTIONS (6)
  - Rash vesicular [Unknown]
  - Peripheral swelling [Unknown]
  - Rash generalised [Unknown]
  - Photosensitivity reaction [Unknown]
  - Burning sensation [Unknown]
  - Pain [Unknown]
